FAERS Safety Report 7624963-6 (Version None)
Quarter: 2011Q3

REPORT INFORMATION
  Report Type: 
  Country: None (occurrence: None)
  Receive Date: 20110721
  Receipt Date: 20110629
  Transmission Date: 20111222
  Serious: Yes (Hospitalization, Other)
  Sender: FDA-Public Use
  Company Number: DE-AMGEN-DEUCT2011029433

PATIENT
  Age: 55 Year
  Sex: Female

DRUGS (13)
  1. PREDNISOLONE [Suspect]
     Dosage: 3.75 MG, DAILY
  2. CALCIUM CARBONATE [Suspect]
     Dosage: UNK
  3. VITAMIN D [Suspect]
     Dosage: UNK
  4. LEFLUNOMIDE [Suspect]
     Dosage: 20 MG, DAILY
     Dates: start: 20070701
  5. TOCILIZUMAB [Suspect]
     Dosage: UNKNOWN
     Dates: start: 20110501
  6. ETANERCEPT [Suspect]
     Indication: RHEUMATOID ARTHRITIS
     Dosage: 50 MG, QWK
     Dates: start: 20091201, end: 20091201
  7. ETANERCEPT [Suspect]
     Dosage: 25 MG, 2X/WEEK (CUMULATIVE DOSE 50 MG/WEEK)
     Dates: start: 20100601
  8. CHLOROQUINE [Suspect]
     Dosage: UNK
     Dates: start: 20100301, end: 20100601
  9. CHOLECALCIFEROL [Suspect]
     Dosage: UNK
  10. HYDROXYCHLOROQUINE SULFATE [Suspect]
     Dosage: UNK
     Dates: start: 20100301, end: 20100601
  11. CALCIUM CITRATE [Suspect]
     Dosage: UNK
  12. CALCIUM PHOSPHATE [Suspect]
     Dosage: UNK
  13. PALLADONE [Suspect]
     Dosage: 12 MG IN THE MORNING, 8 MG IN THE NOON, 8 MG IN THE EVENING

REACTIONS (2)
  - ANGINA PECTORIS [None]
  - DYSPNOEA EXERTIONAL [None]
